FAERS Safety Report 19724123 (Version 1)
Quarter: 2021Q3

REPORT INFORMATION
  Report Type: Spontaneous
  Country: NL (occurrence: EG)
  Receive Date: 20210819
  Receipt Date: 20210819
  Transmission Date: 20211014
  Serious: Yes (Hospitalization, Other)
  Sender: FDA-Public Use
  Company Number: NL-ASTRAZENECA-2021A677120

PATIENT
  Age: 41 Year
  Sex: Male

DRUGS (1)
  1. DAPAGLIFLOZIN. [Suspect]
     Active Substance: DAPAGLIFLOZIN
     Indication: TYPE 2 DIABETES MELLITUS
     Route: 048

REACTIONS (6)
  - Neuralgia [Recovered/Resolved]
  - Penile pain [Recovered/Resolved]
  - Pain [Recovered/Resolved]
  - Testicular pain [Recovered/Resolved]
  - Perineal pain [Recovered/Resolved]
  - Fournier^s gangrene [Recovered/Resolved]
